FAERS Safety Report 8352354-1 (Version None)
Quarter: 2012Q2

REPORT INFORMATION
  Report Type: 
  Country: None (occurrence: None)
  Receive Date: 20120511
  Receipt Date: 20120508
  Transmission Date: 20120825
  Serious: Yes (Hospitalization)
  Sender: FDA-Public Use
  Company Number: CH-PFIZER INC-2012111910

PATIENT
  Age: 35 Year
  Sex: Female
  Weight: 43.5 kg

DRUGS (7)
  1. DIFLUCAN [Suspect]
     Dosage: 200 MG, 1X/DAY
     Route: 048
     Dates: start: 20120105, end: 20120116
  2. PROGRAF [Interacting]
     Indication: IMMUNOSUPPRESSION
     Dosage: 1 MG, 2X/DAY
     Route: 048
     Dates: start: 20111101
  3. BACTRIM DS [Concomitant]
     Dosage: 400 MG, 1X/DAY
     Route: 048
  4. MADOPAR [Concomitant]
     Dosage: 125 MG, 1X/DAY
     Route: 048
  5. PANTOPRAZOLE [Concomitant]
     Dosage: 40 MG, 1X/DAY
     Route: 048
  6. DIFLUCAN [Interacting]
     Dosage: 100 MG, 1X/DAY
     Route: 048
     Dates: start: 20120117, end: 20120119
  7. MYCOPHENOLATE MOFETIL (CELLCEPT) [Interacting]
     Indication: IMMUNOSUPPRESSION
     Dosage: 500 MG, 2X/DAY
     Route: 048
     Dates: start: 20111101

REACTIONS (3)
  - DRUG INTERACTION [None]
  - RENAL TUBULAR DISORDER [None]
  - THROMBOTIC MICROANGIOPATHY [None]
